FAERS Safety Report 5613734-8 (Version None)
Quarter: 2008Q1

REPORT INFORMATION
  Report Type: 
  Country: None (occurrence: None)
  Receive Date: 20080130
  Receipt Date: 20080118
  Transmission Date: 20080703
  Serious: Yes (Hospitalization)
  Sender: FDA-Public Use
  Company Number: 05-NIP00060

PATIENT
  Age: 63 Year
  Sex: Male
  Weight: 105 kg

DRUGS (9)
  1. NIPENT [Suspect]
     Indication: CHRONIC LYMPHOCYTIC LEUKAEMIA
     Dosage: 4 MG/M2 Q12DAYS IV
     Route: 042
     Dates: start: 20050418, end: 20050607
  2. RITUXAN [Suspect]
     Indication: CHRONIC LYMPHOCYTIC LEUKAEMIA
     Dosage: 373 MG/ME Q21DAYS IV
     Route: 042
     Dates: start: 20050418, end: 20050607
  3. CYTOXAN [Suspect]
     Indication: CHRONIC LYMPHOCYTIC LEUKAEMIA
     Dosage: 600 MG/M2 Q21DAYS IV
     Route: 042
     Dates: start: 20050418, end: 20050607
  4. GLUCOPHAGE /00082701/. MFR: NOT SPECIFIED [Concomitant]
  5. GLUCOTROL [Concomitant]
  6. AVALIDE. MFR: NOT SPECIFIED [Concomitant]
  7. TRICOR [Concomitant]
  8. NEURONTIN. MFR: NOT SPECIFIED [Concomitant]
  9. PROCRIT [Concomitant]

REACTIONS (23)
  - BLEPHARITIS [None]
  - BLOOD BICARBONATE INCREASED [None]
  - BLOOD CHLORIDE INCREASED [None]
  - BLOOD CREATININE INCREASED [None]
  - BLOOD CULTURE POSITIVE [None]
  - BLOOD UREA INCREASED [None]
  - BRONCHOSPASM [None]
  - COUGH [None]
  - DEHYDRATION [None]
  - FEBRILE NEUTROPENIA [None]
  - FLUID OVERLOAD [None]
  - GASTROENTERITIS [None]
  - HAEMATOCRIT DECREASED [None]
  - HAEMOGLOBIN DECREASED [None]
  - NAUSEA [None]
  - PLATELET COUNT DECREASED [None]
  - PLEURAL EFFUSION [None]
  - RESPIRATORY RATE INCREASED [None]
  - STAPHYLOCOCCAL INFECTION [None]
  - URINARY CASTS [None]
  - WHEEZING [None]
  - WHITE BLOOD CELLS URINE POSITIVE [None]
  - X-RAY GASTROINTESTINAL TRACT ABNORMAL [None]
